FAERS Safety Report 19369067 (Version 2)
Quarter: 2021Q2

REPORT INFORMATION
  Report Type: Spontaneous
  Country: US (occurrence: US)
  Receive Date: 20210603
  Receipt Date: 20210603
  Transmission Date: 20210717
  Serious: No
  Sender: FDA-Public Use
  Company Number: US-SPECGX-T202001291

PATIENT
  Sex: Female
  Weight: 56 kg

DRUGS (7)
  1. HYDROCODONE/ACETAMINOPHEN [Suspect]
     Active Substance: ACETAMINOPHEN\HYDROCODONE
     Indication: RASH
     Dosage: UNK, 4 TIMES A DAY
     Route: 065
  2. AMLODIPINE [Concomitant]
     Active Substance: AMLODIPINE BESYLATE
     Indication: HYPERTENSION
     Dosage: 5 MILLIGRAM
     Route: 065
  3. CINACALCET. [Concomitant]
     Active Substance: CINACALCET
     Indication: CALCIUM DEFICIENCY
     Dosage: 30 MILLIGRAM
     Route: 065
  4. MIRTAZAPIN [Concomitant]
     Active Substance: MIRTAZAPINE
     Indication: DEPRESSION
     Dosage: 30 MILLIGRAM
  5. LIPITOR [Concomitant]
     Active Substance: ATORVASTATIN CALCIUM
     Indication: PRODUCT USED FOR UNKNOWN INDICATION
     Dosage: UNK
     Route: 065
  6. HYDROCODONE/ACETAMINOPHEN [Suspect]
     Active Substance: ACETAMINOPHEN\HYDROCODONE
     Indication: NEURALGIA
     Dosage: UNK, 4 TIMES A DAY
     Route: 065
  7. BABY ASPIRIN [Concomitant]
     Active Substance: ASPIRIN
     Indication: HYPERTENSION
     Dosage: 81 MILLIGRAM
     Route: 065

REACTIONS (2)
  - Product use in unapproved indication [Unknown]
  - Drug ineffective [Unknown]
